FAERS Safety Report 24873984 (Version 1)
Quarter: 2025Q1

REPORT INFORMATION
  Report Type: Spontaneous
  Country: US (occurrence: US)
  Receive Date: 20250122
  Receipt Date: 20250122
  Transmission Date: 20250409
  Serious: No
  Sender: MERCK
  Company Number: US-009507513-2501USA000192

PATIENT
  Age: 23 Year
  Sex: Male

DRUGS (6)
  1. INVANZ [Suspect]
     Active Substance: ERTAPENEM SODIUM
     Indication: Helicobacter infection
  2. INVANZ [Suspect]
     Active Substance: ERTAPENEM SODIUM
     Indication: Liver disorder
  3. AZITHROMYCIN [Concomitant]
     Active Substance: AZITHROMYCIN
     Indication: Helicobacter infection
  4. AZITHROMYCIN [Concomitant]
     Active Substance: AZITHROMYCIN
     Indication: Liver disorder
  5. LEVOFLOXACIN [Concomitant]
     Active Substance: LEVOFLOXACIN
     Indication: Helicobacter infection
  6. LEVOFLOXACIN [Concomitant]
     Active Substance: LEVOFLOXACIN
     Indication: Liver disorder

REACTIONS (1)
  - Product use in unapproved indication [Unknown]
